FAERS Safety Report 7360902-3 (Version None)
Quarter: 2011Q1

REPORT INFORMATION
  Report Type: 
  Country: None (occurrence: None)
  Receive Date: 20110318
  Receipt Date: 20110304
  Transmission Date: 20110831
  Serious: Yes (Other)
  Sender: FDA-Public Use
  Company Number: PHHY2011DE18179

PATIENT
  Sex: Male

DRUGS (6)
  1. RAMIPRIL [Concomitant]
     Dosage: UNK
     Dates: start: 20060101
  2. SIMVASTATIN [Concomitant]
     Dosage: UNK
     Dates: start: 20060101
  3. METOPROLOL SUCCINATE [Concomitant]
     Dosage: UNK
     Dates: start: 20060101
  4. RASILEZ [Suspect]
     Indication: HYPERTENSION
     Dosage: 300 MG, UNK
     Dates: start: 20110101, end: 20110302
  5. HYDROCHLOROTHIAZIDE [Concomitant]
     Dosage: UNK
     Dates: start: 20060101
  6. LERCANIDIPINE [Concomitant]
     Dosage: UNK
     Dates: start: 20060101

REACTIONS (7)
  - GAMMA-GLUTAMYLTRANSFERASE INCREASED [None]
  - BLOOD ALKALINE PHOSPHATASE INCREASED [None]
  - HEPATIC NECROSIS [None]
  - TRANSAMINASES INCREASED [None]
  - ASPARTATE AMINOTRANSFERASE INCREASED [None]
  - ALANINE AMINOTRANSFERASE INCREASED [None]
  - IDIOSYNCRATIC DRUG REACTION [None]
